FAERS Safety Report 4712863-0 (Version None)
Quarter: 2005Q3

REPORT INFORMATION
  Report Type: 
  Country: None (occurrence: None)
  Receive Date: 20050711
  Receipt Date: 20050628
  Transmission Date: 20060218
  Serious: Yes (Hospitalization, Other)
  Sender: FDA-Public Use
  Company Number: 2005094695

PATIENT
  Age: 47 Year
  Sex: Female
  Weight: 53 kg

DRUGS (8)
  1. SOLU-MEDROL [Suspect]
     Indication: ILL-DEFINED DISORDER
     Dosage: 900 (CYCLICAL), INTRAVENOUS
     Route: 042
     Dates: start: 20040114, end: 20050305
  2. CYCLOPHOSPHAMIDE [Suspect]
     Indication: ILL-DEFINED DISORDER
     Dosage: 450 MG (CYCLICAL), INTRAVENOUS
     Route: 042
     Dates: start: 20040114, end: 20050305
  3. METHOTREXATE [Suspect]
     Indication: ILL-DEFINED DISORDER
     Dosage: 7.5 MG (2.5 MG, 1 WK), ORAL
     Route: 048
     Dates: start: 20041004, end: 20050406
  4. AMITRIPTYLINE HCL [Concomitant]
  5. FOSAMAX [Concomitant]
  6. OROCAL (CALCIUM CARBONATE) [Concomitant]
  7. TRACLEER [Concomitant]
  8. LEDERFOLIN             (CALICUM FOLINATE) [Concomitant]

REACTIONS (8)
  - ALBUMIN GLOBULIN RATIO ABNORMAL [None]
  - ANTIPHOSPHOLIPID SYNDROME [None]
  - BLOOD IMMUNOGLOBULIN M INCREASED [None]
  - GLOMERULONEPHRITIS [None]
  - HYPOALBUMINAEMIA [None]
  - MICROSCOPIC POLYANGIITIS [None]
  - OEDEMA PERIPHERAL [None]
  - PROTEINURIA [None]
